FAERS Safety Report 10248563 (Version 1)
Quarter: 2014Q2

REPORT INFORMATION
  Report Type: Spontaneous
  Country: US (occurrence: None)
  Receive Date: 20140617
  Receipt Date: 20140617
  Transmission Date: 20141212
  Serious: Yes (Death, Life-Threatening, Hospitalization, Disabling, Other)
  Sender: FDA-Public Use
  Company Number: None

PATIENT
  Age: 78 Year
  Sex: Male
  Weight: 98.88 kg

DRUGS (7)
  1. WARFARIN 2.5 MG [Suspect]
     Indication: ATRIAL FIBRILLATION
     Dosage: 1 TABLET QD ORAL
     Route: 048
  2. ASPIRIN [Concomitant]
  3. ATORVASTATIN [Concomitant]
  4. GLIPIZIDE [Concomitant]
  5. METOPROLOL TARTRATE [Concomitant]
  6. OMEGA-3 [Concomitant]
  7. PANTOPRAZOLE [Concomitant]

REACTIONS (2)
  - Fall [None]
  - Subdural haematoma [None]
